FAERS Safety Report 5158996-9 (Version None)
Quarter: 2006Q4

REPORT INFORMATION
  Report Type: 
  Country: None (occurrence: None)
  Receive Date: 20061114
  Receipt Date: 20061106
  Transmission Date: 20070319
  Serious: Yes (Life-Threatening, Hospitalization)
  Sender: FDA-Public Use
  Company Number: D0045516A

PATIENT
  Age: 43 Year
  Sex: Female
  Weight: 59.8748 kg

DRUGS (2)
  1. MALARONE [Suspect]
     Indication: MALARIA
     Dosage: ORAL
     Route: 048
     Dates: start: 20040722, end: 20040724
  2. SODIUM ARTESUNATE (SODIUM ARTESUNATE) [Suspect]
     Indication: MALARIA
     Dosage: PER DAY ORAL
     Route: 048
     Dates: start: 20040701, end: 20040721

REACTIONS (5)
  - CEREBRAL MALARIA [None]
  - DEPRESSED LEVEL OF CONSCIOUSNESS [None]
  - DRUG INEFFECTIVE [None]
  - MYOCLONIC EPILEPSY [None]
  - PSYCHIATRIC SYMPTOM [None]
